FAERS Safety Report 10222257 (Version 1)
Quarter: 2014Q2

REPORT INFORMATION
  Report Type: Spontaneous
  Country: JP (occurrence: JP)
  Receive Date: 20140606
  Receipt Date: 20140606
  Transmission Date: 20141212
  Serious: Yes (Death)
  Sender: FDA-Public Use
  Company Number: JP-PFIZER INC-2014155968

PATIENT
  Age: 45 Year
  Sex: Female

DRUGS (2)
  1. JZOLOFT [Suspect]
     Indication: DEPRESSION
     Dosage: 100 MG, DAILY
     Route: 048
  2. REFLEX (MIRTAZAPINE) [Concomitant]
     Dosage: 15 MG, DAILY
     Route: 048

REACTIONS (1)
  - Completed suicide [Fatal]
